FAERS Safety Report 15423792 (Version 1)
Quarter: 2018Q3

REPORT INFORMATION
  Report Type: Spontaneous
  Country: NL (occurrence: NL)
  Receive Date: 20180925
  Receipt Date: 20180925
  Transmission Date: 20181010
  Serious: Yes (Other)
  Sender: FDA-Public Use
  Company Number: NL-AUROBINDO-AUR-APL-2018-047006

PATIENT
  Sex: Male
  Weight: 80 kg

DRUGS (2)
  1. PAROXETINE. [Suspect]
     Active Substance: PAROXETINE
     Indication: ASTHENIA
     Dosage: 30 MILLIGRAM, DAILY
     Route: 065
     Dates: start: 20140101
  2. PAROXETINE. [Suspect]
     Active Substance: PAROXETINE
     Indication: NEGATIVE THOUGHTS
     Dosage: 15 MILLIGRAM, DAILY
     Route: 065
     Dates: end: 20180401

REACTIONS (7)
  - Disturbance in attention [Recovering/Resolving]
  - Feeling abnormal [Recovering/Resolving]
  - Dry eye [Recovering/Resolving]
  - Rash [Recovering/Resolving]
  - Depressed level of consciousness [Recovering/Resolving]
  - Dry skin [Recovering/Resolving]
  - Fatigue [Recovering/Resolving]

NARRATIVE: CASE EVENT DATE: 20160101
